FAERS Safety Report 7673569-1 (Version None)
Quarter: 2011Q3

REPORT INFORMATION
  Report Type: 
  Country: None (occurrence: None)
  Receive Date: 20110804
  Receipt Date: 20110719
  Transmission Date: 20111222
  Serious: Yes (Death, Congenital Anomaly)
  Sender: FDA-Public Use
  Company Number: ZOLP20110048

PATIENT
  Age: 0 Week
  Sex: Male

DRUGS (3)
  1. ZOLPIDEM TARTRATE [Suspect]
     Indication: MATERNAL EXPOSURE DURING PREGNANCY
     Dosage: 30-40 MG, DAILY, TRANSPLACENTAL, 700-800 MG, DAILY, TRANSPLACENTAL, 30-40 MG, DAILY, TRANSPLACENTAL
     Route: 064
     Dates: start: 20080101
  2. ZOLPIDEM TARTRATE [Suspect]
     Indication: MATERNAL EXPOSURE DURING PREGNANCY
     Dosage: 30-40 MG, DAILY, TRANSPLACENTAL, 700-800 MG, DAILY, TRANSPLACENTAL, 30-40 MG, DAILY, TRANSPLACENTAL
     Route: 064
     Dates: start: 20080101, end: 20080101
  3. ZOLPIDEM TARTRATE [Suspect]
     Indication: MATERNAL EXPOSURE DURING PREGNANCY
     Dosage: 30-40 MG, DAILY, TRANSPLACENTAL, 700-800 MG, DAILY, TRANSPLACENTAL, 30-40 MG, DAILY, TRANSPLACENTAL
     Route: 064
     Dates: start: 20080101, end: 20080101

REACTIONS (4)
  - CAESAREAN SECTION [None]
  - MATERNAL DRUGS AFFECTING FOETUS [None]
  - MENINGOMYELOCELE [None]
  - CONGENITAL HYDROCEPHALUS [None]
